FAERS Safety Report 9218090 (Version 4)
Quarter: 2013Q2

REPORT INFORMATION
  Report Type: Spontaneous
  Country: FR (occurrence: FR)
  Receive Date: 20130408
  Receipt Date: 20130618
  Transmission Date: 20140414
  Serious: Yes (Other)
  Sender: FDA-Public Use
  Company Number: FR-GLAXOSMITHKLINE-B0879244A

PATIENT
  Age: 55 Year
  Sex: Female
  Weight: 61 kg

DRUGS (13)
  1. ADARTREL [Suspect]
     Indication: RESTLESS LEGS SYNDROME
     Route: 048
     Dates: start: 20081013, end: 2011
  2. INSULIN [Concomitant]
     Route: 065
  3. ROPINIROLE [Concomitant]
     Route: 065
  4. INEXIUM [Concomitant]
     Route: 048
  5. TAHOR [Concomitant]
     Route: 048
  6. KARDEGIC [Concomitant]
     Route: 048
  7. NEURONTIN [Concomitant]
     Route: 048
  8. STABLON [Concomitant]
     Route: 048
  9. SERESTA [Concomitant]
     Route: 048
  10. ZOPICLONE [Concomitant]
     Route: 048
  11. APROVEL [Concomitant]
     Route: 048
  12. PERIDYS [Concomitant]
     Route: 048
  13. FLECAINE [Concomitant]
     Route: 048

REACTIONS (15)
  - Obsessive-compulsive disorder [Recovered/Resolved with Sequelae]
  - Abnormal behaviour [Not Recovered/Not Resolved]
  - Suicidal ideation [Unknown]
  - Aggression [Unknown]
  - Poor quality sleep [Unknown]
  - Somnolence [Unknown]
  - Disturbance in attention [Unknown]
  - Memory impairment [Unknown]
  - Self esteem decreased [Unknown]
  - Dependence [Not Recovered/Not Resolved]
  - Social avoidant behaviour [Unknown]
  - Disturbance in attention [Unknown]
  - Myoclonus [Unknown]
  - Malaise [Unknown]
  - Inappropriate schedule of drug administration [Unknown]
